FAERS Safety Report 20646398 (Version 1)
Quarter: 2022Q1

REPORT INFORMATION
  Report Type: Report from Study
  Country: US (occurrence: US)
  Receive Date: 20220329
  Receipt Date: 20220329
  Transmission Date: 20220424
  Serious: No
  Sender: FDA-Public Use
  Company Number: US-NOVARTISTESTPH-NVSC2022US070116

PATIENT
  Sex: Female

DRUGS (1)
  1. TABRECTA [Suspect]
     Active Substance: CAPMATINIB
     Indication: Lung neoplasm malignant
     Dosage: 400 MG, Q2H
     Route: 048
     Dates: start: 202109

REACTIONS (4)
  - Nausea [Unknown]
  - Vomiting [Unknown]
  - Enzyme level abnormal [Unknown]
  - Food craving [Unknown]
